FAERS Safety Report 10709412 (Version 1)
Quarter: 2015Q1

REPORT INFORMATION
  Report Type: Spontaneous
  Country: US (occurrence: None)
  Receive Date: 20150113
  Receipt Date: 20150113
  Transmission Date: 20150721
  Serious: No
  Sender: FDA-Public Use
  Company Number: None

PATIENT
  Age: 56 Year
  Sex: Male
  Weight: 136.08 kg

DRUGS (20)
  1. FENOFIBRATE )TRICOR) 54 MG [Concomitant]
  2. INSULIN SYRINGE 31 G [Concomitant]
  3. GLUCOSE BLOOD (ONE TOUCH ULTA TEST)STRIP [Concomitant]
  4. TRAMADOL (ULTARAM) 50 MCG [Concomitant]
  5. METOPROLOL (LORPESSOR ) 50 MG TABLET [Concomitant]
  6. GLUCOSAMINE 500 MG TABS [Concomitant]
  7. ASPIRIN 325 MG EC TABLET [Concomitant]
  8. CLOPIDOGREL (PLAVIX)75 MG [Concomitant]
  9. CADEXOMER IODINE 0.9% [Concomitant]
  10. INSULIN ASPART (NOVOLOG) 100 UNIT/ML [Concomitant]
  11. CLONIDINE (CATAPRES) [Concomitant]
  12. NITROGLYCERIN (NITROSTAT) [Concomitant]
  13. TRAZODONE [Suspect]
     Active Substance: TRAZODONE HYDROCHLORIDE
     Route: 048
     Dates: start: 20141205, end: 20141207
  14. AMLODIPINE (NORVASC) 10 MG TABLET [Concomitant]
  15. GABAPENTIN (NEUROTRONIN) 300 MG [Concomitant]
  16. LIPITOR [Concomitant]
     Active Substance: ATORVASTATIN CALCIUM
  17. LANTUS 100 UNIT/ML INJECTIONS [Concomitant]
  18. ENALPRIL (VASOTEC) 20 MG TABLET [Concomitant]
  19. LEVOTHYROXINE (SYNTHROID, LEVOTHYROID) 50 MCG [Concomitant]
  20. CHOLECALCIFEROL (VITAMIN D3) [Concomitant]

REACTIONS (6)
  - Dizziness postural [None]
  - Dry mouth [None]
  - Diarrhoea [None]
  - Eye disorder [None]
  - Dyspnoea [None]
  - Nasal congestion [None]

NARRATIVE: CASE EVENT DATE: 20141205
